FAERS Safety Report 5958798-7 (Version None)
Quarter: 2008Q4

REPORT INFORMATION
  Report Type: 
  Country: None (occurrence: None)
  Receive Date: 20081117
  Receipt Date: 20080317
  Transmission Date: 20090506
  Serious: No
  Sender: FDA-Public Use
  Company Number: US025021

PATIENT
  Sex: Female

DRUGS (2)
  1. FENTORA [Suspect]
     Indication: BACK PAIN
     Dosage: 400 UG, BUCCAL
     Route: 002
  2. LORTAB [Concomitant]

REACTIONS (2)
  - DRUG DIVERSION [None]
  - DRUG PRESCRIBING ERROR [None]
